FAERS Safety Report 8565123-4 (Version None)
Quarter: 2012Q3

REPORT INFORMATION
  Report Type: 
  Country: None (occurrence: None)
  Receive Date: 20120803
  Receipt Date: 20120731
  Transmission Date: 20120928
  Serious: No
  Sender: FDA-Public Use
  Company Number: US-PFIZER INC-2012152666

PATIENT
  Sex: Female
  Weight: 112.93 kg

DRUGS (8)
  1. LYRICA [Suspect]
     Dosage: 150 MG, 2X/DAY
     Route: 048
     Dates: start: 20090101, end: 20100101
  2. CLONAZEPAM [Concomitant]
     Dosage: UNK
  3. GLEEVEC [Concomitant]
     Dosage: UNK
  4. LEXAPRO [Concomitant]
     Dosage: UNK
  5. VICODIN [Concomitant]
     Dosage: UNK
  6. METFORMIN [Concomitant]
     Dosage: UNK
  7. LYRICA [Suspect]
     Indication: MERALGIA PARAESTHETICA
     Dosage: 150 MG, 2X/DAY
     Route: 048
     Dates: start: 20070101, end: 20090101
  8. PREVACID [Concomitant]
     Dosage: UNK

REACTIONS (2)
  - WITHDRAWAL SYNDROME [None]
  - MALAISE [None]
